FAERS Safety Report 5993178-X (Version None)
Quarter: 2008Q4

REPORT INFORMATION
  Report Type: 
  Country: None (occurrence: None)
  Receive Date: 20081210
  Receipt Date: 20081210
  Transmission Date: 20090506
  Serious: Yes (Hospitalization)
  Sender: FDA-Public Use
  Company Number: None

PATIENT
  Age: 65 Year
  Sex: Female
  Weight: 130 kg

DRUGS (1)
  1. BUPROPION HCL [Suspect]
     Indication: MENTAL DISORDER
     Dosage: 100MG TWICE DAILY PO
     Route: 048
     Dates: start: 20081117, end: 20081124

REACTIONS (1)
  - STEVENS-JOHNSON SYNDROME [None]
